FAERS Safety Report 9402470 (Version 2)
Quarter: 2013Q3

REPORT INFORMATION
  Report Type: Spontaneous
  Country: FR (occurrence: FR)
  Receive Date: 20130716
  Receipt Date: 20130725
  Transmission Date: 20140515
  Serious: Yes (Hospitalization)
  Sender: FDA-Public Use
  Company Number: FR-UCBSA-091662

PATIENT
  Age: 89 Year
  Sex: Male

DRUGS (8)
  1. KEPPRA [Suspect]
     Route: 048
     Dates: start: 20130509, end: 20130511
  2. LAMICTAL [Suspect]
     Indication: PARTIAL SEIZURES
     Route: 048
     Dates: start: 20130501, end: 20130509
  3. PERINDOPRIL [Concomitant]
     Route: 048
  4. METFORMIN [Concomitant]
     Route: 048
  5. INEXIUM [Concomitant]
     Route: 048
  6. KARDEGIC [Concomitant]
     Dosage: IN DOSE BQG
     Route: 048
  7. TAHOR [Concomitant]
     Route: 048
  8. SEROPLEX [Concomitant]
     Route: 048

REACTIONS (5)
  - Rash maculo-papular [Recovered/Resolved]
  - Rash pustular [Recovered/Resolved]
  - Lip oedema [Recovered/Resolved with Sequelae]
  - Anaemia [Unknown]
  - Lymphopenia [Unknown]
